FAERS Safety Report 9439862 (Version 3)
Quarter: 2014Q1

REPORT INFORMATION
  Report Type: Spontaneous
  Country: US (occurrence: US)
  Receive Date: 20130805
  Receipt Date: 20140213
  Transmission Date: 20141002
  Serious: Yes (Other)
  Sender: FDA-Public Use
  Company Number: US-JNJFOC-20130306564

PATIENT
  Sex: Female

DRUGS (4)
  1. TOPAMAX [Suspect]
     Indication: CONVULSION
     Route: 048
  2. PHENOBARBITAL [Suspect]
     Indication: CONVULSION
     Route: 065
  3. PRENATAL VITAMINS [Concomitant]
     Indication: PREGNANCY
     Route: 065
  4. FOLIC ACID [Concomitant]
     Indication: PREGNANCY
     Route: 065

REACTIONS (2)
  - Exposure during pregnancy [Recovered/Resolved]
  - Emotional disorder [Unknown]
